FAERS Safety Report 24028827 (Version 1)
Quarter: 2024Q2

REPORT INFORMATION
  Report Type: Spontaneous
  Country: US (occurrence: US)
  Receive Date: 20240628
  Receipt Date: 20240628
  Transmission Date: 20240715
  Serious: Yes (Other)
  Sender: FDA-Public Use
  Company Number: US-MYLANLABS-2024M1057853

PATIENT
  Age: 35 Year
  Sex: Male

DRUGS (13)
  1. SULFAMETHOXAZOLE\TRIMETHOPRIM [Suspect]
     Active Substance: SULFAMETHOXAZOLE\TRIMETHOPRIM
     Indication: Bacterial infection
     Dosage: UNK
     Route: 065
  2. COLCHICINE [Suspect]
     Active Substance: COLCHICINE
     Indication: Evidence based treatment
     Dosage: UNK
     Route: 065
  3. COLCHICINE [Suspect]
     Active Substance: COLCHICINE
     Indication: Immunosuppressant drug therapy
  4. COLCHICINE [Suspect]
     Active Substance: COLCHICINE
     Indication: Autoinflammatory disease
  5. METHOTREXATE [Suspect]
     Active Substance: METHOTREXATE
     Indication: Immunosuppressant drug therapy
     Dosage: UNK
     Route: 065
  6. METHOTREXATE [Suspect]
     Active Substance: METHOTREXATE
     Indication: Autoinflammatory disease
  7. ANAKINRA [Suspect]
     Active Substance: ANAKINRA
     Indication: Immunosuppressant drug therapy
     Dosage: UNK
     Route: 065
  8. ANAKINRA [Suspect]
     Active Substance: ANAKINRA
     Indication: Autoinflammatory disease
  9. ADALIMUMAB [Suspect]
     Active Substance: ADALIMUMAB\ISOPROPYL ALCOHOL
     Indication: Immunosuppressant drug therapy
     Dosage: UNK
     Route: 065
  10. ADALIMUMAB [Suspect]
     Active Substance: ADALIMUMAB\ISOPROPYL ALCOHOL
     Indication: Autoinflammatory disease
  11. TOCILIZUMAB [Suspect]
     Active Substance: TOCILIZUMAB
     Indication: Immunosuppressant drug therapy
     Dosage: UNK
     Route: 065
  12. TOCILIZUMAB [Suspect]
     Active Substance: TOCILIZUMAB
     Indication: Autoinflammatory disease
  13. CEFTRIAXONE [Concomitant]
     Active Substance: CEFTRIAXONE\CEFTRIAXONE SODIUM
     Indication: Bacterial infection
     Dosage: UNK
     Route: 065

REACTIONS (2)
  - Neutropenia [Unknown]
  - Whipple^s disease [Recovering/Resolving]
